FAERS Safety Report 9306446 (Version 1)
Quarter: 2013Q1

REPORT INFORMATION
  Report Type: Spontaneous
  Country: JP (occurrence: None)
  Receive Date: 20130305
  Receipt Date: 20130305
  Transmission Date: 20140127
  Serious: No
  Sender: FDA-Public Use
  Company Number: SPI201300074

PATIENT
  Age: 44 Year
  Sex: Female

DRUGS (1)
  1. AMITIZA (LUBIPROSTONE) CAPSULE, 24MCG [Suspect]
     Indication: CONSTIPATION
     Route: 048
     Dates: start: 20130129, end: 20130129

REACTIONS (4)
  - Abdominal pain [None]
  - Nausea [None]
  - Diarrhoea [None]
  - Abdominal discomfort [None]
